FAERS Safety Report 18021470 (Version 4)
Quarter: 2020Q3

REPORT INFORMATION
  Report Type: Report from Study
  Country: None (occurrence: ES)
  Receive Date: 20200714
  Receipt Date: 20200721
  Transmission Date: 20201103
  Serious: Yes (Death, Life-Threatening, Other)
  Sender: FDA-Public Use
  Company Number: ES-ABBVIE-20K-144-3480912-00

PATIENT
  Age: 70 Year
  Sex: Female
  Weight: 60 kg

DRUGS (3)
  1. APOMORPHINE [Concomitant]
     Active Substance: APOMORPHINE
     Indication: PARKINSON^S DISEASE
     Dosage: PUMP,24 HOURS
     Route: 058
  2. PANTOPRAZOL [Concomitant]
     Active Substance: PANTOPRAZOLE SODIUM
     Indication: PRODUCT USED FOR UNKNOWN INDICATION
     Route: 042
  3. DUODOPA [Suspect]
     Active Substance: CARBIDOPA\LEVODOPA
     Indication: PARKINSON^S DISEASE
     Route: 050
     Dates: start: 20110926, end: 20200710

REACTIONS (7)
  - Stoma site infection [Not Recovered/Not Resolved]
  - Abdominal pain [Unknown]
  - Pain [Unknown]
  - Pyrexia [Not Recovered/Not Resolved]
  - Embedded device [Recovered/Resolved]
  - Abdominal sepsis [Fatal]
  - Abdominal wall abscess [Not Recovered/Not Resolved]

NARRATIVE: CASE EVENT DATE: 2020
